FAERS Safety Report 4900442-1 (Version None)
Quarter: 2006Q1

REPORT INFORMATION
  Report Type: 
  Country: None (occurrence: None)
  Receive Date: 20060126
  Receipt Date: 20050829
  Transmission Date: 20060701
  Serious: Yes (Other)
  Sender: FDA-Public Use
  Company Number: USA0508106820

PATIENT
  Age: 32 Year
  Sex: Male
  Weight: 88.6 kg

DRUGS (2)
  1. STRATTERA [Suspect]
     Indication: ATTENTION DEFICIT/HYPERACTIVITY DISORDER
     Dosage: 65 MG
     Dates: start: 20050601
  2. TRAZODONE HCL [Concomitant]

REACTIONS (2)
  - URINARY RETENTION [None]
  - WEIGHT DECREASED [None]
